FAERS Safety Report 6845327-9 (Version None)
Quarter: 2010Q3

REPORT INFORMATION
  Report Type: 
  Country: None (occurrence: None)
  Receive Date: 20100715
  Receipt Date: 20070817
  Transmission Date: 20110219
  Serious: No
  Sender: FDA-Public Use
  Company Number: US-PFIZER INC-2007070848

PATIENT
  Sex: Female
  Weight: 59.5 kg

DRUGS (3)
  1. CHANTIX [Suspect]
     Indication: SMOKING CESSATION THERAPY
     Dates: start: 20070806
  2. EFFEXOR [Concomitant]
     Dates: start: 20070401
  3. SIMVASTATIN [Concomitant]

REACTIONS (6)
  - DIPLOPIA [None]
  - FEELING ABNORMAL [None]
  - FEELING DRUNK [None]
  - MIDDLE INSOMNIA [None]
  - NAUSEA [None]
  - VERTIGO [None]
